FAERS Safety Report 12815771 (Version 2)
Quarter: 2017Q3

REPORT INFORMATION
  Report Type: Spontaneous
  Country: US (occurrence: US)
  Receive Date: 20161005
  Receipt Date: 20170809
  Transmission Date: 20171127
  Serious: Yes (Death, Hospitalization)
  Sender: FDA-Public Use
  Company Number: US-JNJFOC-20161002777

PATIENT
  Age: 67 Year
  Sex: Female
  Weight: 100.25 kg

DRUGS (1)
  1. XARELTO [Suspect]
     Active Substance: RIVAROXABAN
     Indication: THROMBOSIS
     Dosage: APPROXIMATELY 10-20 MG
     Route: 048
     Dates: start: 201401, end: 201409

REACTIONS (4)
  - Off label use [Unknown]
  - Epistaxis [Unknown]
  - Haemorrhage intracranial [Fatal]
  - Prescribed underdose [Unknown]

NARRATIVE: CASE EVENT DATE: 2014
